FAERS Safety Report 16830110 (Version 2)
Quarter: 2019Q4

REPORT INFORMATION
  Report Type: Spontaneous
  Country: US (occurrence: US)
  Receive Date: 20190919
  Receipt Date: 20191107
  Transmission Date: 20200122
  Serious: No
  Sender: FDA-Public Use
  Company Number: US-CELGENEUS-USA-20190904128

PATIENT
  Age: 62 Year
  Sex: Male

DRUGS (3)
  1. OTEZLA [Suspect]
     Active Substance: APREMILAST
     Indication: PSORIASIS
     Dosage: 10/20/30 MG STARTER PACK
     Route: 048
     Dates: start: 20190802
  2. TRIAMCINOLONE [Concomitant]
     Active Substance: TRIAMCINOLONE
     Indication: PRODUCT USED FOR UNKNOWN INDICATION
     Dosage: .2 PERCENT
     Route: 061
     Dates: start: 20190723
  3. OTEZLA [Suspect]
     Active Substance: APREMILAST
     Dosage: 60 MILLIGRAM
     Route: 048
     Dates: start: 20190808, end: 20190901

REACTIONS (2)
  - Therapy non-responder [Unknown]
  - Affective disorder [Recovered/Resolved]

NARRATIVE: CASE EVENT DATE: 2019
